FAERS Safety Report 5096717-9 (Version None)
Quarter: 2006Q3

REPORT INFORMATION
  Report Type: 
  Country: None (occurrence: None)
  Receive Date: 20060831
  Receipt Date: 20060818
  Transmission Date: 20061208
  Serious: Yes (Death, Life-Threatening, Other)
  Sender: FDA-Public Use
  Company Number: 2006EU001880

PATIENT
  Sex: Male

DRUGS (2)
  1. PROGRAF [Suspect]
     Indication: HEART TRANSPLANT
  2. TERCIAN (CYAMEMAZINE) [Suspect]
     Indication: NEUROLEPTIC MALIGNANT SYNDROME

REACTIONS (5)
  - CARDIAC PROCEDURE COMPLICATION [None]
  - DRUG INTERACTION [None]
  - LOW CARDIAC OUTPUT SYNDROME [None]
  - MULTIPLE DRUG OVERDOSE INTENTIONAL [None]
  - VENTRICULAR FIBRILLATION [None]
